FAERS Safety Report 17460447 (Version 6)
Quarter: 2020Q4

REPORT INFORMATION
  Report Type: Spontaneous
  Country: US (occurrence: US)
  Receive Date: 20200226
  Receipt Date: 20201216
  Transmission Date: 20210113
  Serious: No
  Sender: FDA-Public Use
  Company Number: US-PFIZER INC-2020083721

PATIENT
  Age: 57 Year
  Sex: Male
  Weight: 101 kg

DRUGS (4)
  1. INLYTA [Suspect]
     Active Substance: AXITINIB
     Indication: RENAL CANCER
     Dosage: 5 MG, 2X/DAY (EVERY 12 HOURS)
     Dates: start: 201909, end: 202004
  2. INLYTA [Suspect]
     Active Substance: AXITINIB
     Dosage: 3 MG (TAKE 3 TABS BY MOUTH TWICE A DAY EVEN DAYS + ALTERNATE WITH 3 TABS BY MOUTH DAILY ODD DAYS)
     Route: 048
     Dates: start: 2020, end: 2020
  3. KEYTRUDA [Concomitant]
     Active Substance: PEMBROLIZUMAB
     Dosage: UNK
     Dates: start: 201909
  4. INLYTA [Suspect]
     Active Substance: AXITINIB
     Indication: CLEAR CELL RENAL CELL CARCINOMA
     Dosage: 3 MG, 2X/DAY (EVERY 12 HOURS)
     Dates: start: 202004, end: 2020

REACTIONS (5)
  - Amnesia [Not Recovered/Not Resolved]
  - Liver function test abnormal [Unknown]
  - Stomatitis [Recovered/Resolved]
  - Weight decreased [Recovered/Resolved]
  - Diarrhoea [Recovered/Resolved]

NARRATIVE: CASE EVENT DATE: 201909
